FAERS Safety Report 6934915-7 (Version None)
Quarter: 2010Q3

REPORT INFORMATION
  Report Type: 
  Country: None (occurrence: None)
  Receive Date: 20100821
  Receipt Date: 20100810
  Transmission Date: 20110219
  Serious: Yes (Other)
  Sender: FDA-Public Use
  Company Number: PHHY2010US25187

PATIENT
  Sex: Female

DRUGS (5)
  1. EXTAVIA [Suspect]
     Indication: MULTIPLE SCLEROSIS
     Dosage: 0.25 MG, QOD
     Route: 058
     Dates: start: 20100212
  2. VITAMIN D [Concomitant]
     Dosage: 1 DF, QD
  3. HYDROCODONE BITARTRATE [Concomitant]
     Dosage: 500 MG, BID
  4. CYMBALTA [Concomitant]
     Dosage: 30 MG, BID
  5. TIZANIDINE HCL [Concomitant]
     Dosage: 4 MG

REACTIONS (15)
  - BONE CYST [None]
  - BONE DISORDER [None]
  - CARTILAGE INJURY [None]
  - CYST REMOVAL [None]
  - FACIAL NERVE DISORDER [None]
  - FACIAL OPERATION [None]
  - FACIAL PAIN [None]
  - FALL [None]
  - HEADACHE [None]
  - INJECTION SITE CYST [None]
  - INJECTION SITE ERYTHEMA [None]
  - INJECTION SITE PRURITUS [None]
  - INJECTION SITE SWELLING [None]
  - SWELLING FACE [None]
  - VISION BLURRED [None]
